FAERS Safety Report 7061638-9 (Version None)
Quarter: 2010Q4

REPORT INFORMATION
  Report Type: 
  Country: None (occurrence: None)
  Receive Date: 20101026
  Receipt Date: 20101020
  Transmission Date: 20110411
  Serious: Yes (Other)
  Sender: FDA-Public Use
  Company Number: BR-PFIZER INC-2010082431

PATIENT
  Age: 53 Year
  Sex: Female
  Weight: 64 kg

DRUGS (12)
  1. CHAMPIX [Suspect]
     Indication: TOBACCO USER
     Dosage: 0.5 MG, 1X/DAY
     Dates: start: 20100511, end: 20100522
  2. CHAMPIX [Suspect]
     Dosage: 0.5 MG, 1X/DAY
     Route: 048
     Dates: start: 20100604, end: 20100601
  3. RIVOTRIL [Concomitant]
     Indication: NERVOUSNESS
     Dosage: UNK
     Dates: start: 20080101
  4. RIVOTRIL [Concomitant]
     Indication: ANXIETY
  5. RIVOTRIL [Concomitant]
     Indication: SEDATIVE THERAPY
  6. ATENOLOL [Concomitant]
     Dosage: UNK
     Dates: start: 20010701
  7. SIMVASTATIN [Concomitant]
     Indication: BLOOD DISORDER
     Dosage: UNK
     Dates: start: 20010101
  8. SIMVASTATIN [Concomitant]
     Indication: BLOOD CHOLESTEROL
  9. LOSARTAN [Concomitant]
     Indication: HYPERTENSION
     Dosage: UNK
     Dates: start: 20091201
  10. AMLODIPINE BESILATE [Concomitant]
     Indication: HYPERTENSION
     Dosage: UNK
     Dates: start: 20060101
  11. FLUOXETINE [Concomitant]
     Indication: ANTIDEPRESSANT THERAPY
     Dosage: UNK
     Dates: start: 19900101
  12. SOMALGIN [Concomitant]
     Dosage: UNK
     Dates: start: 20010101

REACTIONS (6)
  - DEPRESSION [None]
  - DIZZINESS [None]
  - FORMICATION [None]
  - NERVOUSNESS [None]
  - SUICIDAL IDEATION [None]
  - WITHDRAWAL SYNDROME [None]
